FAERS Safety Report 17972975 (Version 1)
Quarter: 2020Q3

REPORT INFORMATION
  Report Type: Spontaneous
  Country: US (occurrence: US)
  Receive Date: 20200701
  Receipt Date: 20200701
  Transmission Date: 20201103
  Serious: No
  Sender: FDA-Public Use
  Company Number: None

PATIENT
  Age: 38 Year
  Sex: Female
  Weight: 91.3 kg

DRUGS (1)
  1. OCREVUS [Suspect]
     Active Substance: OCRELIZUMAB
     Indication: IRON DEFICIENCY ANAEMIA
     Dates: start: 20191209

REACTIONS (3)
  - Throat irritation [None]
  - Oropharyngeal discomfort [None]
  - Chest discomfort [None]

NARRATIVE: CASE EVENT DATE: 20200623
